FAERS Safety Report 9292286 (Version 2)
Quarter: 2013Q2

REPORT INFORMATION
  Report Type: Spontaneous
  Country: JP (occurrence: JP)
  Receive Date: 20130516
  Receipt Date: 20130529
  Transmission Date: 20140414
  Serious: Yes (Death)
  Sender: FDA-Public Use
  Company Number: PHHY2013JP048374

PATIENT
  Age: 49 Year
  Sex: Male

DRUGS (2)
  1. CICLOSPORIN [Suspect]
     Indication: ALLOGENIC BONE MARROW TRANSPLANTATION THERAPY
     Dates: start: 201206
  2. METHOTREXATE [Concomitant]

REACTIONS (5)
  - Respiratory arrest [Fatal]
  - Cerebral toxoplasmosis [Fatal]
  - Headache [Fatal]
  - Nausea [Fatal]
  - Altered state of consciousness [Fatal]
